FAERS Safety Report 12732037 (Version 1)
Quarter: 2016Q3

REPORT INFORMATION
  Report Type: Spontaneous
  Country: US (occurrence: US)
  Receive Date: 20160912
  Receipt Date: 20160912
  Transmission Date: 20161109
  Serious: Yes (Other)
  Sender: FDA-Public Use
  Company Number: US-JNJFOC-20160714848

PATIENT
  Sex: Male
  Weight: 86.18 kg

DRUGS (3)
  1. LANTUS [Concomitant]
     Active Substance: INSULIN GLARGINE
     Indication: BLOOD GLUCOSE ABNORMAL
     Route: 058
  2. XARELTO [Suspect]
     Active Substance: RIVAROXABAN
     Indication: HEART RATE IRREGULAR
     Route: 048
     Dates: start: 201512
  3. CRESTOR [Concomitant]
     Active Substance: ROSUVASTATIN CALCIUM
     Indication: BLOOD CHOLESTEROL
     Route: 048

REACTIONS (4)
  - Drug dose omission [Unknown]
  - Haemorrhage [Not Recovered/Not Resolved]
  - Feeling cold [Not Recovered/Not Resolved]
  - Coagulopathy [Not Recovered/Not Resolved]
